FAERS Safety Report 7265027-3 (Version None)
Quarter: 2011Q1

REPORT INFORMATION
  Report Type: 
  Country: None (occurrence: None)
  Receive Date: 20110131
  Receipt Date: 20101116
  Transmission Date: 20110831
  Serious: Yes (Hospitalization, Other)
  Sender: FDA-Public Use
  Company Number: US-BAYER-201038125NA

PATIENT
  Sex: Female
  Weight: 73 kg

DRUGS (11)
  1. MIRALAX [Concomitant]
     Dosage: UNK
     Dates: start: 20061005
  2. YAZ [Suspect]
     Indication: ACNE
     Dosage: UNK
     Dates: start: 20020101, end: 20100101
  3. PROZAC [Concomitant]
     Indication: DEPRESSION
     Dosage: UNK
     Dates: start: 20040101, end: 20090101
  4. YASMIN [Suspect]
     Indication: ACNE
     Dosage: UNK
     Dates: start: 20020101, end: 20100101
  5. ZELNORM [Concomitant]
     Indication: CONSTIPATION
     Dosage: UNK
     Dates: start: 20060101, end: 20070101
  6. SYNTHROID [Concomitant]
     Dosage: UNK
     Dates: start: 20091201
  7. VICODIN [Concomitant]
  8. OCELLA [Suspect]
     Indication: ACNE
     Dosage: UNK
     Dates: start: 20020101, end: 20100101
  9. NIRAVAM [Concomitant]
     Dosage: UNK
     Dates: start: 20070716
  10. HEPARIN [Concomitant]
     Dosage: UNK
     Dates: start: 20070701
  11. ADDERALL 10 [Concomitant]
     Indication: ATTENTION DEFICIT/HYPERACTIVITY DISORDER
     Dosage: UNK
     Dates: start: 20060101, end: 20100101

REACTIONS (8)
  - INJURY [None]
  - PAIN [None]
  - ABDOMINAL PAIN UPPER [None]
  - CHOLELITHIASIS [None]
  - ABDOMINAL TENDERNESS [None]
  - CONSTIPATION [None]
  - CHOLECYSTITIS CHRONIC [None]
  - DIVERTICULUM [None]
